FAERS Safety Report 6718264-8 (Version None)
Quarter: 2010Q2

REPORT INFORMATION
  Report Type: 
  Country: None (occurrence: None)
  Receive Date: 20100510
  Receipt Date: 20100417
  Transmission Date: 20101027
  Serious: Yes (Hospitalization, Disabling)
  Sender: FDA-Public Use
  Company Number: GB-TEVA-233444ISR

PATIENT
  Sex: Male
  Weight: 106.6 kg

DRUGS (2)
  1. PREDNISOLONE [Suspect]
     Indication: PROSTATE CANCER METASTATIC
     Route: 048
  2. ABIRATERONE ACETATE OR PLACEBO [Suspect]
     Indication: PROSTATE CANCER METASTATIC
     Route: 048

REACTIONS (1)
  - ABDOMINAL PAIN [None]
